FAERS Safety Report 26135435 (Version 1)
Quarter: 2025Q4

REPORT INFORMATION
  Report Type: Spontaneous
  Country: US (occurrence: US)
  Receive Date: 20251209
  Receipt Date: 20251209
  Transmission Date: 20260117
  Serious: Yes (Hospitalization, Other)
  Sender: ALEXION PHARMACEUTICALS
  Company Number: US-AstraZeneca-CH-01008806A

PATIENT
  Sex: Female

DRUGS (1)
  1. SAPHNELO [Suspect]
     Active Substance: ANIFROLUMAB-FNIA
     Route: 065
     Dates: start: 202503, end: 202503

REACTIONS (8)
  - Herpes zoster [Not Recovered/Not Resolved]
  - Immune system disorder [Unknown]
  - Gait disturbance [Unknown]
  - Pneumonia [Unknown]
  - Infection [Unknown]
  - Urinary incontinence [Unknown]
  - Loss of consciousness [Unknown]
  - Pain [Not Recovered/Not Resolved]

NARRATIVE: CASE EVENT DATE: 20250101
